FAERS Safety Report 8134731-7 (Version None)
Quarter: 2012Q1

REPORT INFORMATION
  Report Type: 
  Country: None (occurrence: None)
  Receive Date: 20120214
  Receipt Date: 20120208
  Transmission Date: 20120608
  Serious: Yes (Death)
  Sender: FDA-Public Use
  Company Number: JP-PFIZER INC-2012034810

PATIENT

DRUGS (1)
  1. ZYVOX [Suspect]
     Route: 065

REACTIONS (1)
  - PLATELET COUNT DECREASED [None]
